FAERS Safety Report 9931811 (Version 1)
Quarter: 2014Q1

REPORT INFORMATION
  Report Type: Spontaneous
  Country: US (occurrence: US)
  Receive Date: 20140228
  Receipt Date: 20140228
  Transmission Date: 20141002
  Serious: No
  Sender: FDA-Public Use
  Company Number: US-BAYER-2014-031489

PATIENT
  Sex: Female

DRUGS (1)
  1. GADAVIST [Suspect]
     Dosage: UNK UNK, ONCE
     Route: 042
     Dates: start: 20140224, end: 20140224

REACTIONS (3)
  - Injection site erythema [None]
  - Erythema [None]
  - Feeling hot [None]
